FAERS Safety Report 23742299 (Version 2)
Quarter: 2024Q2

REPORT INFORMATION
  Report Type: Report from Study
  Country: US (occurrence: US)
  Receive Date: 20240415
  Receipt Date: 20240628
  Transmission Date: 20240716
  Serious: Yes (Other)
  Sender: FDA-Public Use
  Company Number: US-BRISTOL-MYERS SQUIBB COMPANY-2024-055518

PATIENT
  Age: 71 Year
  Sex: Female

DRUGS (11)
  1. CAMZYOS [Suspect]
     Active Substance: MAVACAMTEN
     Indication: Hypertrophic cardiomyopathy
     Dosage: QD
     Route: 048
     Dates: start: 20240211, end: 20240211
  2. CAMZYOS [Suspect]
     Active Substance: MAVACAMTEN
     Dosage: QD
     Route: 048
     Dates: start: 20240306
  3. CAMZYOS [Suspect]
     Active Substance: MAVACAMTEN
     Dosage: QD, LVOT GREATER THAN 30
     Route: 048
     Dates: start: 20240529
  4. METOPROLOL [Concomitant]
     Active Substance: METOPROLOL
     Indication: Product used for unknown indication
     Dosage: QD
     Route: 048
     Dates: start: 20160205, end: 20170722
  5. METOPROLOL [Concomitant]
     Active Substance: METOPROLOL
     Dosage: QD
     Route: 048
     Dates: start: 20170723, end: 20230721
  6. METOPROLOL [Concomitant]
     Active Substance: METOPROLOL
     Dosage: QD
     Route: 048
     Dates: start: 20230722
  7. ASPIRIN [Concomitant]
     Active Substance: ASPIRIN
     Indication: Product used for unknown indication
     Dosage: QD
     Route: 048
     Dates: start: 20180323
  8. ROSUVASTATIN [Concomitant]
     Active Substance: ROSUVASTATIN
     Indication: Hyperlipidaemia
     Dosage: QD
     Route: 048
     Dates: start: 20170217
  9. VALSARTAN [Concomitant]
     Active Substance: VALSARTAN
     Indication: Hypertension
     Dosage: QD
     Route: 048
     Dates: start: 20230721
  10. PANTOPRAZOLE [Concomitant]
     Active Substance: PANTOPRAZOLE
     Indication: Gastrooesophageal reflux disease
     Dosage: QD
     Route: 048
     Dates: start: 20220610
  11. CETIRIZINE [Concomitant]
     Active Substance: CETIRIZINE HYDROCHLORIDE
     Indication: Prophylaxis
     Dosage: PRN
     Route: 048
     Dates: start: 20240324

REACTIONS (1)
  - Angioedema [Recovered/Resolved]

NARRATIVE: CASE EVENT DATE: 20240211
